FAERS Safety Report 8790122 (Version 1)
Quarter: 2012Q4

REPORT INFORMATION
  Report Type: 
  Country: US (occurrence: US)
  Receive Date: 20120917
  Receipt Date: 20120917
  Transmission Date: 20130627
  Serious: No
  Sender: FDA-Public Use
  Company Number: US-TEVA-359196USA

PATIENT
  Age: 40 Year
  Sex: Female
  Weight: 50.85 kg

DRUGS (1)
  1. PLAN B ONE-STEP [Suspect]
     Indication: POST COITAL CONTRACEPTION
     Dosage: 1.5 Milligram Daily;
     Route: 048
     Dates: start: 20120815, end: 20120815

REACTIONS (10)
  - Dyspepsia [Not Recovered/Not Resolved]
  - Nipple pain [Not Recovered/Not Resolved]
  - Nipple disorder [Not Recovered/Not Resolved]
  - Constipation [Not Recovered/Not Resolved]
  - Adnexa uteri pain [Not Recovered/Not Resolved]
  - Nausea [Not Recovered/Not Resolved]
  - Fatigue [Not Recovered/Not Resolved]
  - Diarrhoea [Recovered/Resolved]
  - Menstruation irregular [Recovered/Resolved]
  - Breast tenderness [Not Recovered/Not Resolved]
